FAERS Safety Report 9507485 (Version 3)
Quarter: 2013Q4

REPORT INFORMATION
  Report Type: Report from Study
  Country: US (occurrence: US)
  Receive Date: 20130909
  Receipt Date: 20131007
  Transmission Date: 20140711
  Serious: Yes (Death, Hospitalization, Other)
  Sender: FDA-Public Use
  Company Number: US-CELGENEUS-163-21880-13083267

PATIENT
  Age: 65 Year
  Sex: Female
  Weight: 50 kg

DRUGS (7)
  1. REVLIMID [Suspect]
     Indication: PLASMA CELL MYELOMA
     Route: 048
     Dates: start: 20110204
  2. REVLIMID [Suspect]
     Dosage: 25 MILLIGRAM
     Route: 048
     Dates: start: 20130709, end: 20130815
  3. BORTEZOMIB [Concomitant]
     Indication: PLASMA CELL MYELOMA
     Route: 058
     Dates: start: 20110204
  4. BORTEZOMIB [Concomitant]
     Dates: start: 20130711, end: 20130808
  5. SOLU-MEDROL [Concomitant]
     Indication: PRODUCT USED FOR UNKNOWN INDICATION
     Dosage: 1 GRAM
     Route: 065
  6. ZOFRAN [Concomitant]
     Indication: PRODUCT USED FOR UNKNOWN INDICATION
     Route: 065
  7. DEXAMETHASONE [Concomitant]
     Indication: PLASMA CELL MYELOMA
     Route: 048
     Dates: start: 20110204, end: 20130815

REACTIONS (4)
  - Plasma cell myeloma [Fatal]
  - Renal failure acute [Fatal]
  - Haemoglobin decreased [Unknown]
  - Platelet count decreased [Unknown]
